FAERS Safety Report 19106886 (Version 1)
Quarter: 2021Q2

REPORT INFORMATION
  Report Type: Report from Study
  Country: FR (occurrence: DE)
  Receive Date: 20210408
  Receipt Date: 20210408
  Transmission Date: 20210717
  Serious: Yes (Hospitalization)
  Sender: FDA-Public Use
  Company Number: FR-SUN PHARMACEUTICAL INDUSTRIES LTD-2021RR-290315

PATIENT
  Age: 70 Year
  Sex: Male

DRUGS (10)
  1. ALLOPURINOL. [Concomitant]
     Active Substance: ALLOPURINOL
     Indication: PRE-EXISTING DISEASE
     Dosage: 150 MILLIGRAM, DAILY
     Route: 048
     Dates: start: 2016
  2. IRBESARTAN. [Concomitant]
     Active Substance: IRBESARTAN
     Indication: PRE-EXISTING DISEASE
     Dosage: 300 MILLIGRAM, DAILY
     Route: 048
  3. TORASEMID [Concomitant]
     Active Substance: TORSEMIDE
     Indication: PRE-EXISTING DISEASE
     Dosage: 10 MILLIGRAM, BID
     Route: 048
  4. ASPIRIN. [Concomitant]
     Active Substance: ASPIRIN
     Indication: PROPHYLAXIS
     Dosage: 100 MILLIGRAM, DAILY
     Route: 048
     Dates: start: 2020
  5. CELECOXIB. [Concomitant]
     Active Substance: CELECOXIB
     Indication: PRE-EXISTING DISEASE
     Dosage: 200 MILLIGRAM, DAILY
     Route: 048
  6. SONIDEGIB [Suspect]
     Active Substance: SONIDEGIB
     Indication: BASAL CELL CARCINOMA
     Dosage: 200 MILLIGRAM, DAILY
     Route: 048
     Dates: start: 20210204, end: 20210324
  7. SITAGLIPITIN [Concomitant]
     Indication: PRE-EXISTING DISEASE
     Dosage: 50 MILLIGRAM, DAILY
     Route: 048
  8. HCT [Concomitant]
     Active Substance: HYDROCHLOROTHIAZIDE
     Indication: PRE-EXISTING DISEASE
     Dosage: 12.5 MILLIGRAM, DAILY
     Route: 048
  9. BISOPROLOL [Concomitant]
     Active Substance: BISOPROLOL
     Indication: PRE-EXISTING DISEASE
     Dosage: 5 MILLIGRAM, BID
     Route: 048
  10. METFORMIN [Concomitant]
     Active Substance: METFORMIN HYDROCHLORIDE
     Indication: PRE-EXISTING DISEASE
     Dosage: 1000 MILLIGRAM, DAILY
     Route: 048

REACTIONS (1)
  - Skin ulcer [Not Recovered/Not Resolved]

NARRATIVE: CASE EVENT DATE: 20210324
